FAERS Safety Report 19010992 (Version 1)
Quarter: 2021Q1

REPORT INFORMATION
  Report Type: Spontaneous
  Country: US (occurrence: US)
  Receive Date: 20210312
  Receipt Date: 20210312
  Transmission Date: 20210420
  Serious: Yes (Death, Hospitalization)
  Sender: FDA-Public Use
  Company Number: None

PATIENT
  Age: 98 Year
  Sex: Male
  Weight: 81 kg

DRUGS (1)
  1. APIXABAN [Suspect]
     Active Substance: APIXABAN
     Indication: PRODUCT USED FOR UNKNOWN INDICATION
     Route: 048
     Dates: start: 20191113, end: 20210212

REACTIONS (16)
  - Mental status changes [None]
  - Cerebral ischaemia [None]
  - Cerebral haemorrhage [None]
  - Cardiac arrest [None]
  - Intracranial pressure increased [None]
  - Unresponsive to stimuli [None]
  - Pleural effusion [None]
  - Spinal column injury [None]
  - Subarachnoid haemorrhage [None]
  - International normalised ratio abnormal [None]
  - Fall [None]
  - Seizure [None]
  - Respiratory distress [None]
  - Vomiting [None]
  - Brain death [None]
  - Bradycardia [None]

NARRATIVE: CASE EVENT DATE: 20210212
